FAERS Safety Report 13106370 (Version 1)
Quarter: 2017Q1

REPORT INFORMATION
  Report Type: Spontaneous
  Country: US (occurrence: US)
  Receive Date: 20170111
  Receipt Date: 20170111
  Transmission Date: 20170428
  Serious: Yes (Death)
  Sender: FDA-Public Use
  Company Number: US-PERRIGO-17US000404

PATIENT
  Age: 49 Year
  Sex: Female

DRUGS (2)
  1. DILTIAZEM XR [Suspect]
     Active Substance: DILTIAZEM
     Indication: COMPLETED SUICIDE
     Dosage: 9600 MG, SINGLE
     Route: 048
  2. DOXYLAMINE SUCCINATE. [Suspect]
     Active Substance: DOXYLAMINE SUCCINATE
     Indication: COMPLETED SUICIDE
     Dosage: 4800 MG, SINGLE
     Route: 048

REACTIONS (20)
  - Rhabdomyolysis [Fatal]
  - Mental status changes [Fatal]
  - Acidosis [Fatal]
  - Colon gangrene [Fatal]
  - Acute abdomen [Fatal]
  - Multiple organ dysfunction syndrome [Fatal]
  - Hypoxia [Fatal]
  - Myocardial necrosis [Fatal]
  - Small intestine gangrene [Fatal]
  - Intentional overdose [Fatal]
  - Toxicity to various agents [Fatal]
  - Hypotension [Fatal]
  - Acute kidney injury [Fatal]
  - Acute hepatic failure [Fatal]
  - Shock [Fatal]
  - Intestinal infarction [Fatal]
  - Renal necrosis [Fatal]
  - Bradycardia [Fatal]
  - Pneumonia [Fatal]
  - Hepatic necrosis [Fatal]
